FAERS Safety Report 7849847-X (Version None)
Quarter: 2011Q4

REPORT INFORMATION
  Report Type: 
  Country: None (occurrence: None)
  Receive Date: 20111026
  Receipt Date: 20111019
  Transmission Date: 20120403
  Serious: Yes (Life-Threatening, Hospitalization, Other)
  Sender: FDA-Public Use
  Company Number: JP-CEPHALON-2011003371

PATIENT
  Sex: Male
  Weight: 43 kg

DRUGS (8)
  1. BENDAMUSTINE HCL [Suspect]
     Indication: B-CELL LYMPHOMA
     Route: 042
     Dates: start: 20110127, end: 20110128
  2. BENDAMUSTINE HCL [Suspect]
     Route: 042
     Dates: start: 20110221, end: 20110221
  3. GRANISETRON HCL [Concomitant]
     Dates: start: 20110127, end: 20110128
  4. RITUXIMAB [Suspect]
     Indication: B-CELL LYMPHOMA
     Route: 042
     Dates: start: 20110126
  5. ACYCLOVIR [Concomitant]
     Dates: start: 20110202, end: 20110330
  6. BENDAMUSTINE HCL [Suspect]
     Route: 042
     Dates: start: 20110217, end: 20110217
  7. BENDAMUSTINE HCL [Suspect]
     Route: 042
     Dates: start: 20110314
  8. AMLODIPINE BESYLATE [Concomitant]
     Dates: end: 20110330

REACTIONS (11)
  - THERAPEUTIC RESPONSE DECREASED [None]
  - C-REACTIVE PROTEIN INCREASED [None]
  - VOMITING [None]
  - LYMPHOCYTE COUNT DECREASED [None]
  - NEUTROPHIL PERCENTAGE INCREASED [None]
  - WHITE BLOOD CELL COUNT DECREASED [None]
  - PYREXIA [None]
  - DECREASED APPETITE [None]
  - NAUSEA [None]
  - REFUSAL OF TREATMENT BY PATIENT [None]
  - ANAEMIA [None]
